FAERS Safety Report 8168385-0 (Version None)
Quarter: 2012Q1

REPORT INFORMATION
  Report Type: 
  Country: None (occurrence: None)
  Receive Date: 20120227
  Receipt Date: 20120216
  Transmission Date: 20120608
  Serious: Yes (Hospitalization)
  Sender: FDA-Public Use
  Company Number: JP-MERCK-1201USA01354

PATIENT
  Age: 87 Year
  Sex: Female
  Weight: 43 kg

DRUGS (8)
  1. FOSAMAX [Concomitant]
     Dosage: DAILY DOSAGE UNKNOWN
     Route: 048
  2. LASIX [Suspect]
     Dosage: DAILY DOSAGE UNKNOWN
     Route: 048
     Dates: end: 20111208
  3. JANUVIA [Concomitant]
     Dosage: DAILY DOSAGE UNKNOWN
     Route: 048
     Dates: end: 20111208
  4. MAGLAX (MAGNESIUM OXIDE) [Concomitant]
     Dosage: DAILY DOSAGE UNKNOWN
     Route: 048
  5. HYZAAR [Suspect]
     Dosage: DAILY DOSAGE UNKNOWN
     Route: 048
     Dates: end: 20111208
  6. TAGAMET [Concomitant]
     Dosage: DAILY DOSAGE UNKNOWN
     Route: 048
     Dates: end: 20111208
  7. ALFAROL [Concomitant]
     Dosage: DAILY DOSAGE UNKNOWN
     Route: 048
  8. MOBIC [Concomitant]
     Dosage: DAILY DOSAGE UNKNOWN
     Route: 048

REACTIONS (5)
  - HYPERCREATININAEMIA [None]
  - HYPERCALCAEMIA [None]
  - NAUSEA [None]
  - VOMITING [None]
  - DECREASED APPETITE [None]
